FAERS Safety Report 10219693 (Version 1)
Quarter: 2014Q2

REPORT INFORMATION
  Report Type: Spontaneous
  Country: US (occurrence: None)
  Receive Date: 20140603
  Receipt Date: 20140603
  Transmission Date: 20141212
  Serious: Yes (Death)
  Sender: FDA-Public Use
  Company Number: CC400219717

PATIENT
  Age: 7 Year
  Sex: Male

DRUGS (5)
  1. CEFTRIAXONE FOR INJ AND DEXTROSE INJ (MANUF UNKNOWN) [Suspect]
     Indication: INFECTION
     Route: 042
  2. FENRETINIDE [Suspect]
     Indication: NEOPLASM RECURRENCE
     Dosage: 1110MG/M2/DAY FOR 119 HRS.
  3. MONTELUKAST SODIUM [Concomitant]
  4. ONDANSETRON HYDROCHLORIDE [Concomitant]
  5. ACETAMINOPHEN [Concomitant]

REACTIONS (24)
  - Drug interaction [None]
  - Headache [None]
  - Pyrexia [None]
  - Dehydration [None]
  - Constipation [None]
  - Hypotension [None]
  - Abdominal distension [None]
  - Pain [None]
  - Epistaxis [None]
  - Pleural effusion [None]
  - Ascites [None]
  - Metabolic acidosis [None]
  - Coagulopathy [None]
  - Rash macular [None]
  - Muscle necrosis [None]
  - Hepatocellular injury [None]
  - Intra-abdominal haemorrhage [None]
  - Infection [None]
  - Hypersensitivity [None]
  - Hepatic necrosis [None]
  - Cholestasis [None]
  - Skin haemorrhage [None]
  - Circulatory collapse [None]
  - Hepatotoxicity [None]
